FAERS Safety Report 5874064-2 (Version None)
Quarter: 2008Q3

REPORT INFORMATION
  Report Type: 
  Country: None (occurrence: None)
  Receive Date: 20080829
  Receipt Date: 20080819
  Transmission Date: 20090109
  Serious: Yes (Death, Life-Threatening, Disabling)
  Sender: FDA-Public Use
  Company Number: 002065

PATIENT
  Age: 66 Year
  Sex: Male

DRUGS (10)
  1. BUSULFEX [Suspect]
     Indication: STEM CELL TRANSPLANT
     Dosage: 25.5 ML, INTRAVENOUS; 34 ML, DAILY DOSE; INTRAVENOUS;  8.5 ML, DAILY DOSE; INTRAVENOUS
     Route: 042
     Dates: start: 20071005, end: 20071005
  2. BUSULFEX [Suspect]
     Indication: STEM CELL TRANSPLANT
     Dosage: 25.5 ML, INTRAVENOUS; 34 ML, DAILY DOSE; INTRAVENOUS;  8.5 ML, DAILY DOSE; INTRAVENOUS
     Route: 042
     Dates: start: 20071006, end: 20071007
  3. BUSULFEX [Suspect]
     Indication: STEM CELL TRANSPLANT
     Dosage: 25.5 ML, INTRAVENOUS; 34 ML, DAILY DOSE; INTRAVENOUS;  8.5 ML, DAILY DOSE; INTRAVENOUS
     Route: 042
     Dates: start: 20071008, end: 20071008
  4. CYTARABINE [Concomitant]
  5. FLUDARABINE PHOSPHATE [Concomitant]
  6. MELPHALAN (MELPHALAN) [Concomitant]
  7. VALPROATE SODIUM [Concomitant]
  8. FILGRASTIM (FILGRASTIM) [Concomitant]
  9. TACROLIMUS [Concomitant]
  10. MYCOPHENOLATE MOFETIL [Concomitant]

REACTIONS (9)
  - ACUTE GRAFT VERSUS HOST DISEASE [None]
  - ACUTE MYELOID LEUKAEMIA RECURRENT [None]
  - BLOOD BILIRUBIN INCREASED [None]
  - CYSTITIS [None]
  - CYTOMEGALOVIRUS ENTEROCOLITIS [None]
  - INTERSTITIAL LUNG DISEASE [None]
  - MALAISE [None]
  - STAPHYLOCOCCAL SEPSIS [None]
  - STOMATITIS [None]
